FAERS Safety Report 20997806 (Version 1)
Quarter: 2022Q2

REPORT INFORMATION
  Report Type: Spontaneous
  Country: US (occurrence: US)
  Receive Date: 20220623
  Receipt Date: 20220623
  Transmission Date: 20220721
  Serious: Yes (Hospitalization)
  Sender: FDA-Public Use
  Company Number: US-MYLANLABS-2022M1046930

PATIENT
  Age: 15 Year
  Sex: Male

DRUGS (5)
  1. TEMOZOLOMIDE [Suspect]
     Active Substance: TEMOZOLOMIDE
     Indication: Anaplastic astrocytoma
     Dosage: UNK
     Route: 065
  2. LOMUSTINE [Suspect]
     Active Substance: LOMUSTINE
     Indication: Anaplastic astrocytoma
     Dosage: MAINTENANCE THERAPY
     Route: 065
  3. DABRAFENIB [Concomitant]
     Active Substance: DABRAFENIB
     Indication: Anaplastic astrocytoma
     Dosage: UNK
     Route: 065
  4. TRAMETINIB [Concomitant]
     Active Substance: TRAMETINIB
     Indication: Anaplastic astrocytoma
     Dosage: UNK
     Route: 065
  5. LEVETIRACETAM [Concomitant]
     Active Substance: LEVETIRACETAM
     Indication: Generalised tonic-clonic seizure
     Dosage: UNK
     Route: 065

REACTIONS (3)
  - Seizure [Unknown]
  - Abnormal behaviour [Unknown]
  - Headache [Unknown]
